FAERS Safety Report 4386434-2 (Version None)
Quarter: 2004Q2

REPORT INFORMATION
  Report Type: 
  Country: None (occurrence: None)
  Receive Date: 20040623
  Receipt Date: 20040609
  Transmission Date: 20050107
  Serious: Yes (Life-Threatening, Hospitalization, Disabling)
  Sender: FDA-Public Use
  Company Number: GBS040615059

PATIENT
  Age: 63 Year
  Sex: Female
  Weight: 55 kg

DRUGS (13)
  1. FLUOXETINE [Suspect]
     Indication: DEPRESSION
     Dosage: 20 MG/1 DAY
  2. KLIOVANCE [Concomitant]
  3. CALCICHEW D3 [Concomitant]
  4. IRON [Concomitant]
  5. BALSALAZIDE [Concomitant]
  6. AZATHIOPRINE [Concomitant]
  7. SERETIDE [Concomitant]
  8. TIOTROPIUM BROMIDE [Concomitant]
  9. TERBUTALINE [Concomitant]
  10. CEFUROXIME [Concomitant]
  11. METRONIDAZOLE [Concomitant]
  12. TRAMADOL [Concomitant]
  13. HYDROCORTISONE [Concomitant]

REACTIONS (6)
  - ASPIRATION [None]
  - CEREBRAL INFARCTION [None]
  - CEREBROVASCULAR ACCIDENT [None]
  - POST PROCEDURAL COMPLICATION [None]
  - PROCTOCOLECTOMY [None]
  - RESPIRATORY FAILURE [None]
